FAERS Safety Report 9424963 (Version 1)
Quarter: 2013Q3

REPORT INFORMATION
  Report Type: Spontaneous
  Country: US (occurrence: US)
  Receive Date: 20130729
  Receipt Date: 20130729
  Transmission Date: 20140515
  Serious: No
  Sender: FDA-Public Use
  Company Number: US-PFIZER INC-2013219893

PATIENT
  Age: 70 Year
  Sex: Male
  Weight: 75.74 kg

DRUGS (7)
  1. EFFEXOR XR [Suspect]
     Indication: DEPRESSION
     Dosage: 75 MG, UNK
     Dates: start: 201202
  2. EFFEXOR XR [Suspect]
     Indication: ANXIETY
     Dosage: 150 MG, UNK
  3. EFFEXOR XR [Suspect]
     Dosage: 75 MG, ALTERNATE DAY
  4. CRESTOR [Concomitant]
     Indication: BLOOD CHOLESTEROL ABNORMAL
     Dosage: 50 MG, DAILY
  5. ENALAPRIL [Concomitant]
     Indication: BLOOD PRESSURE ABNORMAL
     Dosage: 20 MG, 2X/DAY
  6. COREG [Concomitant]
     Indication: BLOOD PRESSURE ABNORMAL
     Dosage: 25 MG, 2X/DAY
  7. SPIRONOLACTONE [Concomitant]
     Indication: BLOOD PRESSURE ABNORMAL
     Dosage: 25 MG, DAILY

REACTIONS (5)
  - Emotional disorder [Recovered/Resolved]
  - Hyperhidrosis [Not Recovered/Not Resolved]
  - Abnormal dreams [Not Recovered/Not Resolved]
  - Abdominal discomfort [Not Recovered/Not Resolved]
  - Drug ineffective [Recovered/Resolved]
